FAERS Safety Report 15441053 (Version 1)
Quarter: 2018Q3

REPORT INFORMATION
  Report Type: Spontaneous
  Country: US (occurrence: US)
  Receive Date: 20180928
  Receipt Date: 20180928
  Transmission Date: 20181010
  Serious: Yes (Other)
  Sender: FDA-Public Use
  Company Number: US-TEVA-2018-US-957687

PATIENT
  Age: 66 Year
  Sex: Male

DRUGS (1)
  1. CARTIA XT [Suspect]
     Active Substance: DILTIAZEM HYDROCHLORIDE
     Indication: EXTRASYSTOLES
     Route: 065
     Dates: start: 201802

REACTIONS (9)
  - Eye pain [Unknown]
  - Eye discharge [Unknown]
  - Foreign body in eye [Unknown]
  - Lacrimation increased [Unknown]
  - Eyelid oedema [Unknown]
  - Photophobia [Unknown]
  - Seasonal allergy [Unknown]
  - Cataract [Unknown]
  - Hordeolum [Unknown]

NARRATIVE: CASE EVENT DATE: 2018
